FAERS Safety Report 10661193 (Version 1)
Quarter: 2014Q4

REPORT INFORMATION
  Report Type: Spontaneous
  Country: US (occurrence: None)
  Receive Date: 20141216
  Receipt Date: 20141216
  Transmission Date: 20150529
  Serious: Yes (Disabling)
  Sender: FDA-Public Use
  Company Number: None

PATIENT
  Age: 54 Year
  Sex: Female
  Weight: 65.77 kg

DRUGS (1)
  1. RISPERIDON [Suspect]
     Active Substance: RISPERIDONE
     Indication: BIPOLAR DISORDER
     Dosage: 1 PILL
     Route: 048

REACTIONS (4)
  - Rash [None]
  - Unevaluable event [None]
  - Lung disorder [None]
  - Weight increased [None]

NARRATIVE: CASE EVENT DATE: 20111201
